FAERS Safety Report 12983363 (Version 2)
Quarter: 2017Q1

REPORT INFORMATION
  Report Type: Spontaneous
  Country: GB (occurrence: GB)
  Receive Date: 20161129
  Receipt Date: 20170110
  Transmission Date: 20170428
  Serious: Yes (Death)
  Sender: FDA-Public Use
  Company Number: GB-FRESENIUS KABI-FK201609074

PATIENT
  Age: 68 Year
  Sex: Female
  Weight: 93 kg

DRUGS (14)
  1. ATRACURIUM [Suspect]
     Active Substance: ATRACURIUM
     Indication: HYPOTONIA
     Route: 042
     Dates: start: 20160929, end: 20160929
  2. CEFUROXIME (MANUFACTURER UNKNOWN) [Suspect]
     Active Substance: CEFUROXIME
     Indication: PROPHYLAXIS
     Route: 042
     Dates: start: 20160929, end: 20160929
  3. CEFUROXIME (MANUFACTURER UNKNOWN) [Suspect]
     Active Substance: CEFUROXIME
     Indication: SURGERY
  4. CODEINE [Concomitant]
     Active Substance: CODEINE
  5. GABAPENTIN. [Concomitant]
     Active Substance: GABAPENTIN
  6. MORPHINE [Suspect]
     Active Substance: MORPHINE
     Indication: PERIOPERATIVE ANALGESIA
     Route: 042
     Dates: start: 20160929
  7. TEICOPLANIN [Concomitant]
     Active Substance: TEICOPLANIN
     Indication: SURGERY
  8. METFORMIN [Concomitant]
     Active Substance: METFORMIN HYDROCHLORIDE
  9. PHENYLEPHRINE [Suspect]
     Active Substance: PHENYLEPHRINE\PHENYLEPHRINE HYDROCHLORIDE
     Indication: BLOOD PRESSURE DECREASED
     Route: 042
     Dates: start: 20160929, end: 20160929
  10. TEICOPLANIN [Concomitant]
     Active Substance: TEICOPLANIN
     Indication: PROPHYLAXIS
     Route: 042
  11. CLOPIDOGREL [Concomitant]
     Active Substance: CLOPIDOGREL BISULFATE
  12. LISINOPRIL. [Concomitant]
     Active Substance: LISINOPRIL
  13. PARACETAMOL [Concomitant]
     Active Substance: ACETAMINOPHEN
  14. PROPOFOL (MANUFACTURER UNKNOWN) [Suspect]
     Active Substance: PROPOFOL
     Indication: GENERAL ANAESTHESIA
     Route: 042
     Dates: start: 20160929, end: 20160929

REACTIONS (7)
  - Anaphylactic reaction [Not Recovered/Not Resolved]
  - Tryptase increased [Not Recovered/Not Resolved]
  - Pulseless electrical activity [Not Recovered/Not Resolved]
  - Myocardial infarction [Fatal]
  - Cardiac arrest [Fatal]
  - Arteriospasm coronary [Not Recovered/Not Resolved]
  - Hypotension [Not Recovered/Not Resolved]

NARRATIVE: CASE EVENT DATE: 20160929
